FAERS Safety Report 6269404-9 (Version None)
Quarter: 2009Q3

REPORT INFORMATION
  Report Type: 
  Country: None (occurrence: None)
  Receive Date: 20090715
  Receipt Date: 20090706
  Transmission Date: 20100115
  Serious: Yes (Hospitalization)
  Sender: FDA-Public Use
  Company Number: FR-ABBOTT-09P-056-0583840-00

PATIENT
  Age: 39 Year
  Sex: Male

DRUGS (7)
  1. SEVOFLURANE [Suspect]
     Indication: DRUG USE FOR UNKNOWN INDICATION
     Dosage: ONCE
     Route: 055
     Dates: start: 20090324, end: 20090324
  2. PARACETAMOL (PERFALGAN) [Suspect]
     Indication: DRUG USE FOR UNKNOWN INDICATION
     Route: 042
     Dates: start: 20090324, end: 20090331
  3. LOVENOX [Suspect]
     Indication: DRUG USE FOR UNKNOWN INDICATION
     Route: 058
     Dates: start: 20090317, end: 20090331
  4. DIPRIVAN [Suspect]
     Indication: DRUG USE FOR UNKNOWN INDICATION
     Route: 042
     Dates: start: 20090324, end: 20090324
  5. HYPNOVEL [Suspect]
     Indication: DRUG USE FOR UNKNOWN INDICATION
     Route: 042
     Dates: start: 20090324, end: 20090324
  6. SUFENTA PRESERVATIVE FREE [Suspect]
     Indication: DRUG USE FOR UNKNOWN INDICATION
     Route: 042
     Dates: start: 20090324, end: 20090324
  7. CEFAZOLIN [Suspect]
     Indication: DRUG USE FOR UNKNOWN INDICATION
     Route: 042
     Dates: start: 20090324, end: 20090324

REACTIONS (5)
  - CHEILITIS [None]
  - ERYTHEMA [None]
  - INFLAMMATION [None]
  - LYMPHADENOPATHY [None]
  - RASH MACULO-PAPULAR [None]
